FAERS Safety Report 7093960-4 (Version None)
Quarter: 2010Q4

REPORT INFORMATION
  Report Type: 
  Country: None (occurrence: None)
  Receive Date: 20101101
  Receipt Date: 20101026
  Transmission Date: 20110411
  Serious: Yes (Other)
  Sender: FDA-Public Use
  Company Number: 2010SP043205

PATIENT
  Age: 67 Year
  Sex: Male

DRUGS (1)
  1. NITRO-DUR [Suspect]
     Indication: PRODUCT USED FOR UNKNOWN INDICATION
     Dosage: 0.4 MG;, 06 MG;
     Dates: start: 20100805

REACTIONS (2)
  - CORONARY ARTERY BYPASS [None]
  - INADEQUATE ANALGESIA [None]
